FAERS Safety Report 10013983 (Version 1)
Quarter: 2014Q1

REPORT INFORMATION
  Report Type: Spontaneous
  Country: FR (occurrence: FR)
  Receive Date: 20140316
  Receipt Date: 20140316
  Transmission Date: 20141002
  Serious: Yes (Hospitalization)
  Sender: FDA-Public Use
  Company Number: FR-JNJFOC-20140307084

PATIENT
  Age: 78 Year
  Sex: Female

DRUGS (7)
  1. XARELTO [Suspect]
     Indication: THROMBOSIS PROPHYLAXIS
     Route: 048
     Dates: start: 201302, end: 20131218
  2. XARELTO [Suspect]
     Indication: THROMBOSIS
     Route: 048
     Dates: start: 201302, end: 20131218
  3. LEVOTHYROX [Concomitant]
     Route: 065
  4. FOSAVANCE [Concomitant]
     Route: 065
  5. FENOFIBRATE [Concomitant]
     Route: 065
  6. SOTALEX [Concomitant]
     Route: 065
  7. CACIT VITAMINE D3 [Concomitant]
     Route: 065

REACTIONS (2)
  - Cerebral haematoma [Recovered/Resolved]
  - Aphasia [Recovered/Resolved]
